FAERS Safety Report 6076360-5 (Version None)
Quarter: 2009Q1

REPORT INFORMATION
  Report Type: 
  Country: None (occurrence: None)
  Receive Date: 20090213
  Receipt Date: 20090204
  Transmission Date: 20090719
  Serious: Yes (Disabling, Other)
  Sender: FDA-Public Use
  Company Number: GB-RANBAXY-2006RR-03523

PATIENT
  Age: 71 Year
  Sex: Male

DRUGS (7)
  1. SIMVASTATIN [Suspect]
     Indication: HYPERCHOLESTEROLAEMIA
     Dosage: 10 MG, QD
     Route: 048
     Dates: start: 20020910, end: 20030121
  2. SIMVASTATIN [Suspect]
     Dosage: 10 MG, UNK
     Dates: start: 20031212, end: 20060223
  3. ACETAMINOPHEN [Concomitant]
     Dosage: UNK
     Route: 048
     Dates: start: 20021015, end: 20060111
  4. ASPIRIN [Concomitant]
     Indication: GLOBAL AMNESIA
     Dosage: 75 MG, QD
     Route: 048
     Dates: start: 20050715
  5. ASPIRIN [Concomitant]
     Indication: TRANSIENT ISCHAEMIC ATTACK
  6. DOTHIEPIN HYDROCHLORIDE [Concomitant]
     Dosage: UNK
     Route: 048
     Dates: start: 20050314, end: 20060111
  7. PROPOXYPHENE HYDROCHLORIDE [Concomitant]
     Dosage: UNK
     Route: 065
     Dates: start: 20021015, end: 20060111

REACTIONS (2)
  - ERECTILE DYSFUNCTION [None]
  - GLOBAL AMNESIA [None]
